FAERS Safety Report 7165623-8 (Version None)
Quarter: 2010Q4

REPORT INFORMATION
  Report Type: 
  Country: None (occurrence: None)
  Receive Date: 20101215
  Receipt Date: 20091229
  Transmission Date: 20110411
  Serious: Yes (Other)
  Sender: FDA-Public Use
  Company Number: US-AMGEN-QUU381788

PATIENT

DRUGS (4)
  1. ENBREL [Suspect]
     Indication: RHEUMATOID ARTHRITIS
     Dosage: 50 MG, QWK
     Route: 058
     Dates: start: 19980101
  2. METHOTREXATE [Concomitant]
     Dosage: UNK UNK, UNK
     Dates: start: 19920101
  3. PREDNISONE [Concomitant]
     Dosage: UNK UNK, UNK
     Dates: start: 20060101
  4. PANADEINE CO [Concomitant]
     Dosage: UNK UNK, UNK
     Dates: start: 20080101

REACTIONS (2)
  - BASAL CELL CARCINOMA [None]
  - RASH PAPULAR [None]
